FAERS Safety Report 10865182 (Version 1)
Quarter: 2015Q1

REPORT INFORMATION
  Report Type: Report from Study
  Country: US (occurrence: US)
  Receive Date: 20150224
  Receipt Date: 20150224
  Transmission Date: 20150721
  Serious: No
  Sender: FDA-Public Use
  Company Number: US-MYLANLABS-2014M1003458

PATIENT
  Age: 49 Year
  Sex: Female

DRUGS (2)
  1. AMNESTEEM [Suspect]
     Active Substance: ISOTRETINOIN
     Indication: OFF LABEL USE
  2. AMNESTEEM [Suspect]
     Active Substance: ISOTRETINOIN
     Indication: TRANSIENT ACANTHOLYTIC DERMATOSIS
     Dosage: 40 MG, QD
     Route: 048
     Dates: start: 20140625, end: 20140828

REACTIONS (2)
  - Mood swings [Not Recovered/Not Resolved]
  - Rash [Not Recovered/Not Resolved]

NARRATIVE: CASE EVENT DATE: 20140828
